FAERS Safety Report 11175145 (Version 1)
Quarter: 2015Q2

REPORT INFORMATION
  Report Type: Spontaneous
  Country: US (occurrence: None)
  Receive Date: 20150515
  Receipt Date: 20150515
  Transmission Date: 20150821
  Serious: Yes (Other)
  Sender: FDA-Public Use
  Company Number: 121682U

PATIENT
  Age: 37 Year
  Sex: Male
  Weight: 72.7 kg

DRUGS (8)
  1. SIMPONI [Concomitant]
     Active Substance: GOLIMUMAB
  2. FLEXRIL (CYCLOBENZAPRINE HYDROCHLORIDE) [Concomitant]
  3. REMICADE [Concomitant]
     Active Substance: INFLIXIMAB
  4. NUCYNTA ER (TAPENTADOL HYDROCHLORIDE) [Concomitant]
  5. PHENOBARBITAL (PHENOBARBITAL) [Concomitant]
     Active Substance: PHENOBARBITAL
  6. CIMZIA [Suspect]
     Active Substance: CERTOLIZUMAB PEGOL
     Indication: RHEUMATOID ARTHRITIS
     Dosage: 40 MG, EV 30 DAYS, SUBCUTANEOUS
     Route: 058
     Dates: start: 20140219, end: 20140318
  7. CYMBALTA (DULOXETINE HYROCHLORIDE) [Concomitant]
  8. LYRICA [Concomitant]
     Active Substance: PREGABALIN

REACTIONS (1)
  - Anaphylactic reaction [None]

NARRATIVE: CASE EVENT DATE: 201402
